FAERS Safety Report 11259071 (Version 1)
Quarter: 2015Q2

REPORT INFORMATION
  Report Type: Spontaneous
  Country: US (occurrence: None)
  Receive Date: 20150617
  Receipt Date: 20150617
  Transmission Date: 20150821
  Serious: No
  Sender: FDA-Public Use
  Company Number: 2015TASUS000671

PATIENT
  Age: 49 Year
  Sex: Male
  Weight: 89.8 kg

DRUGS (1)
  1. HETLIOZ [Suspect]
     Active Substance: TASIMELTEON
     Indication: CIRCADIAN RHYTHM SLEEP DISORDER
     Dosage: 1 CAP, QHS, ORAL
     Route: 048
     Dates: start: 20141126

REACTIONS (2)
  - Middle insomnia [None]
  - Poor quality sleep [None]

NARRATIVE: CASE EVENT DATE: 201411
